FAERS Safety Report 19857729 (Version 1)
Quarter: 2021Q3

REPORT INFORMATION
  Report Type: Spontaneous
  Country: NL (occurrence: NL)
  Receive Date: 20210921
  Receipt Date: 20210921
  Transmission Date: 20211014
  Serious: Yes (Death, Life-Threatening, Hospitalization)
  Sender: FDA-Public Use
  Company Number: NL-SUN PHARMACEUTICAL INDUSTRIES LTD-2021RR-311623

PATIENT
  Age: 68 Year
  Sex: Female
  Weight: 78 kg

DRUGS (6)
  1. LEVOTHYROXINE CAPSULE 125UG / BRAND NAME NOT SPECIFIEDLEVOTHYROXINE... [Concomitant]
     Indication: PRODUCT USED FOR UNKNOWN INDICATION
     Dosage: 125 MICROGRAM, DAILY, 1 X PER DAG 1 STUK
     Route: 065
  2. LORAZEPAM TABLET 1MG / BRAND NAME NOT SPECIFIEDLORAZEPAM TABLET 1MG [Concomitant]
     Indication: PRODUCT USED FOR UNKNOWN INDICATION
     Dosage: 2 DOSAGE FORM, UNK
     Route: 065
  3. ESOMEPRAZOL TABLET MSR 40MG / BRAND NAME NOT SPECIFIEDESOMEPRAZOL T [Concomitant]
     Indication: PRODUCT USED FOR UNKNOWN INDICATION
     Dosage: 40 MILLIGRAM, DAILY, 1 X PER DAG 40 MILLIGRAM
     Route: 065
  4. OXALIPLATIN. [Suspect]
     Active Substance: OXALIPLATIN
     Indication: COLON CANCER
     Dosage: 190 MG
     Route: 065
     Dates: start: 20210622, end: 20210702
  5. MACROGOL/ZOUTEN PDR V DRANK (MOVICOLON+GENERIEK) / BRAND NAME NOT S... [Concomitant]
     Indication: PRODUCT USED FOR UNKNOWN INDICATION
     Dosage: 1 TOT 2 X PER DAG 1 STUK ()
     Route: 065
  6. CAPECITABINE TABLET FO 500MG / BRAND NAME NOT SPECIFIEDCAPECITABINE... [Suspect]
     Active Substance: CAPECITABINE
     Indication: COLON CANCER
     Dosage: 1800 MILLIGRAM, BID, 2 DD 1800 MG, BID
     Route: 065
     Dates: start: 20210622, end: 20210702

REACTIONS (1)
  - Stevens-Johnson syndrome [Fatal]

NARRATIVE: CASE EVENT DATE: 20210701
